FAERS Safety Report 25274964 (Version 3)
Quarter: 2025Q2

REPORT INFORMATION
  Report Type: Spontaneous
  Country: DE (occurrence: DE)
  Receive Date: 20250506
  Receipt Date: 20250623
  Transmission Date: 20250716
  Serious: Yes (Life-Threatening, Hospitalization)
  Sender: FERRING
  Company Number: DE-FERRINGPH-2025FE02262

PATIENT

DRUGS (6)
  1. MINIRIN [Suspect]
     Active Substance: DESMOPRESSIN ACETATE
     Indication: Diabetes insipidus
     Dosage: 0.16 UG, 2 TIMES DAILY WITH A TIME INTERVAL OF 12 HOURS (START 28 YEARS AGO)
     Route: 058
     Dates: end: 202502
  2. MINIRIN [Suspect]
     Active Substance: DESMOPRESSIN ACETATE
     Dosage: 0.16 UG, 2 TIMES WITH A TIME INTERVAL OF 12 HOURS  DAILY
     Route: 058
     Dates: start: 202502, end: 202504
  3. MINIRIN [Suspect]
     Active Substance: DESMOPRESSIN ACETATE
     Dosage: 0.16 UG, 2 TIMES DAILY WITH A TIME INTERVAL OF 12 HOURS
     Route: 058
     Dates: start: 20250429, end: 20250503
  4. MINIRIN [Suspect]
     Active Substance: DESMOPRESSIN ACETATE
     Dosage: 0.16 UG, 2 TIMES DAILY WITH A TIME INTERVAL OF 12 HOURS
     Route: 058
     Dates: start: 20250504, end: 20250504
  5. MINIRIN [Suspect]
     Active Substance: DESMOPRESSIN ACETATE
     Dosage: 0.16 UG, 2 TIMES DAILY WITH A TIME INTERVAL OF 12 HOURS
     Route: 058
     Dates: start: 20250505
  6. VITAMIN D [Concomitant]
     Active Substance: VITAMIN D NOS
     Indication: Vitamin supplementation
     Route: 065

REACTIONS (6)
  - Hyponatraemia [Recovered/Resolved]
  - Hypernatraemia [Recovered/Resolved]
  - Urinary retention [Recovered/Resolved]
  - Urine output decreased [Unknown]
  - Vomiting [Unknown]
  - Suspected product quality issue [Recovered/Resolved]

NARRATIVE: CASE EVENT DATE: 20250101
